APPROVED DRUG PRODUCT: CARBIDOPA AND LEVODOPA
Active Ingredient: CARBIDOPA; LEVODOPA
Strength: 10MG;100MG
Dosage Form/Route: TABLET, ORALLY DISINTEGRATING;ORAL
Application: A090631 | Product #001
Applicant: IMPAX LABORATORIES INC
Approved: Jun 8, 2010 | RLD: No | RS: No | Type: DISCN